FAERS Safety Report 7825227-8 (Version None)
Quarter: 2011Q4

REPORT INFORMATION
  Report Type: 
  Country: None (occurrence: None)
  Receive Date: 20111017
  Receipt Date: 20110930
  Transmission Date: 20120403
  Serious: Yes (Hospitalization)
  Sender: FDA-Public Use
  Company Number: THQ2011A06301

PATIENT
  Sex: Male

DRUGS (2)
  1. ACTOS [Suspect]
     Indication: TYPE 2 DIABETES MELLITUS
     Dosage: PER ORAL
     Route: 048
     Dates: start: 20090101
  2. PIOGLITAZONE HYDROCHLORIDE AND METFORMIN HYDROCHLORIDE [Suspect]
     Indication: TYPE 2 DIABETES MELLITUS
     Dosage: (PIOGLITAZONE HYDROCHLORIDE 15 MG/METFORMIN HYDROCHLORIDE 850 MG,2 IN 1 D) PER ORAL
     Route: 048
     Dates: end: 20110929

REACTIONS (1)
  - BLADDER CANCER [None]
